FAERS Safety Report 21254939 (Version 2)
Quarter: 2023Q2

REPORT INFORMATION
  Report Type: Spontaneous
  Country: US (occurrence: US)
  Receive Date: 20220825
  Receipt Date: 20230412
  Transmission Date: 20230721
  Serious: Yes (Hospitalization)
  Sender: FDA-Public Use
  Company Number: US-THERATECHNOLOGIES INC.-2022-THE-IBA-000242

PATIENT

DRUGS (2)
  1. TROGARZO [Suspect]
     Active Substance: IBALIZUMAB-UIYK
     Indication: HIV infection
     Dosage: 2000 MG, LOADING DOSE
     Route: 042
     Dates: start: 202205, end: 202205
  2. TROGARZO [Suspect]
     Active Substance: IBALIZUMAB-UIYK
     Dosage: 800 MG (MAINTENANCE DOSE), EVERY 2 WEEKS
     Route: 042
     Dates: start: 202205

REACTIONS (2)
  - Hospitalisation [Unknown]
  - Diarrhoea [Not Recovered/Not Resolved]
